FAERS Safety Report 24768829 (Version 2)
Quarter: 2025Q2

REPORT INFORMATION
  Report Type: Spontaneous
  Country: JP (occurrence: JP)
  Receive Date: 20241224
  Receipt Date: 20250514
  Transmission Date: 20250717
  Serious: Yes (Hospitalization)
  Sender: AMGEN
  Company Number: JP-KYOWAKIRIN-2024KK026962

PATIENT

DRUGS (4)
  1. CINACALCET HYDROCHLORIDE [Suspect]
     Active Substance: CINACALCET HYDROCHLORIDE
     Indication: Hypercalcaemia
     Dosage: 25 MILLIGRAM, QD
     Route: 048
     Dates: start: 20240126
  2. CINACALCET HYDROCHLORIDE [Suspect]
     Active Substance: CINACALCET HYDROCHLORIDE
     Dosage: 25 MILLIGRAM, QD
     Route: 048
     Dates: start: 20240313
  3. CINACALCET HYDROCHLORIDE [Suspect]
     Active Substance: CINACALCET HYDROCHLORIDE
     Dosage: 25 MILLIGRAM, QD
     Route: 048
     Dates: start: 20240529
  4. EVOCALCET [Suspect]
     Active Substance: EVOCALCET
     Indication: Hypercalcaemia
     Dosage: 2 MG, BID,IN THE MORNING AND EVENING
     Route: 048

REACTIONS (3)
  - Gastrostomy [Unknown]
  - Off label use [Unknown]
  - Off label use [Unknown]
